FAERS Safety Report 7023932-7 (Version None)
Quarter: 2010Q4

REPORT INFORMATION
  Report Type: 
  Country: None (occurrence: None)
  Receive Date: 20101001
  Receipt Date: 20100922
  Transmission Date: 20110411
  Serious: Yes (Other)
  Sender: FDA-Public Use
  Company Number: JP-ASTRAZENECA-2010SE45910

PATIENT
  Sex: Female

DRUGS (5)
  1. SEROQUEL [Suspect]
     Route: 048
  2. VEGETAMIN A [Concomitant]
     Route: 048
  3. EVAMYL [Concomitant]
     Route: 048
  4. PENTOBARBITAL CAP [Concomitant]
     Route: 048
  5. FLUNITRAZEPAM [Concomitant]
     Route: 048

REACTIONS (1)
  - IMPULSIVE BEHAVIOUR [None]
